FAERS Safety Report 6291890-9 (Version None)
Quarter: 2009Q3

REPORT INFORMATION
  Report Type: 
  Country: None (occurrence: None)
  Receive Date: 20090729
  Receipt Date: 20090716
  Transmission Date: 20100115
  Serious: Yes (Hospitalization, Other)
  Sender: FDA-Public Use
  Company Number: TPA2009A01924

PATIENT
  Age: 58 Year
  Sex: Female
  Weight: 79.3795 kg

DRUGS (7)
  1. PREVACID [Suspect]
     Indication: DYSPEPSIA
     Dosage: 30 MG, 1 IN 1 D, PER ORAL
     Route: 048
  2. PRAVACHOL [Suspect]
     Indication: BLOOD CHOLESTEROL INCREASED
     Dosage: 20 MG, QHS, PER ORAL
     Route: 048
     Dates: start: 20071101
  3. AUGMENTIN '125' [Suspect]
     Indication: SINUS CONGESTION
     Dosage: PER ORAL
     Route: 048
     Dates: start: 20090401, end: 20090401
  4. DIOVAN (ALL OTHER THERAPEUTIC PRODUCTS) [Concomitant]
  5. UNKNOWN BLOOD PRESSURE MEDICATION (ALL OTHER THERAPEUTIC PRODUCTS) [Concomitant]
  6. ASPIRIN [Concomitant]
  7. RANITIDINE [Concomitant]

REACTIONS (6)
  - CEREBROVASCULAR ACCIDENT [None]
  - DIZZINESS [None]
  - DYSPEPSIA [None]
  - LIVER FUNCTION TEST ABNORMAL [None]
  - SINUS DISORDER [None]
  - VISUAL IMPAIRMENT [None]
